FAERS Safety Report 13863335 (Version 1)
Quarter: 2017Q3

REPORT INFORMATION
  Report Type: Report from Study
  Country: None (occurrence: US)
  Receive Date: 20170814
  Receipt Date: 20170814
  Transmission Date: 20171127
  Serious: Yes (Hospitalization, Other)
  Sender: FDA-Public Use
  Company Number: US-ABBVIE-17K-163-2067073-00

PATIENT
  Sex: Female
  Weight: 85.81 kg

DRUGS (8)
  1. HUMIRA [Suspect]
     Active Substance: ADALIMUMAB
     Indication: RHEUMATOID ARTHRITIS
     Route: 058
     Dates: start: 2012
  2. HUMIRA [Suspect]
     Active Substance: ADALIMUMAB
     Indication: PSORIATIC ARTHROPATHY
     Route: 058
  3. HUMIRA [Suspect]
     Active Substance: ADALIMUMAB
     Route: 058
  4. HUMIRA [Suspect]
     Active Substance: ADALIMUMAB
     Route: 058
     Dates: start: 201706, end: 201706
  5. CIMZIA [Suspect]
     Active Substance: CERTOLIZUMAB PEGOL
     Indication: PRODUCT USED FOR UNKNOWN INDICATION
     Route: 050
     Dates: start: 201705, end: 201705
  6. PERCOCET [Concomitant]
     Active Substance: ACETAMINOPHEN\OXYCODONE HYDROCHLORIDE
     Indication: ARTHRALGIA
  7. HUMIRA [Suspect]
     Active Substance: ADALIMUMAB
     Route: 058
     Dates: end: 201705
  8. HUMIRA [Suspect]
     Active Substance: ADALIMUMAB
     Route: 058
     Dates: start: 20170808

REACTIONS (32)
  - Fall [Recovered/Resolved]
  - Psoriatic arthropathy [Recovering/Resolving]
  - Spinal cord injury [Recovered/Resolved]
  - Accident at home [Recovered/Resolved]
  - Stress fracture [Recovered/Resolved]
  - Malaise [Recovered/Resolved]
  - Ocular hyperaemia [Not Recovered/Not Resolved]
  - Skin ulcer [Recovered/Resolved]
  - Joint dislocation [Recovered/Resolved]
  - Exostosis [Unknown]
  - Visual impairment [Not Recovered/Not Resolved]
  - Psoriatic arthropathy [Not Recovered/Not Resolved]
  - Osteonecrosis [Recovered/Resolved]
  - Peripheral swelling [Recovered/Resolved]
  - Hypophagia [Recovered/Resolved]
  - Weight decreased [Unknown]
  - Eye irritation [Not Recovered/Not Resolved]
  - Crying [Unknown]
  - Arthralgia [Recovered/Resolved]
  - Fall [Recovered/Resolved]
  - Hip fracture [Recovered/Resolved]
  - Wrist fracture [Recovered/Resolved]
  - Insomnia [Recovered/Resolved]
  - Inflammatory marker increased [Recovered/Resolved]
  - Eye disorder [Not Recovered/Not Resolved]
  - Spinal cord haemorrhage [Recovered/Resolved]
  - Injury [Recovered/Resolved]
  - Osteonecrosis [Unknown]
  - Fluid intake reduced [Recovered/Resolved]
  - Skin discolouration [Recovered/Resolved]
  - Dysgraphia [Not Recovered/Not Resolved]
  - Pain in extremity [Recovered/Resolved]

NARRATIVE: CASE EVENT DATE: 2012
